FAERS Safety Report 16568693 (Version 1)
Quarter: 2019Q3

REPORT INFORMATION
  Report Type: Report from Study
  Country: ES (occurrence: ES)
  Receive Date: 20190713
  Receipt Date: 20190713
  Transmission Date: 20191004
  Serious: Yes (Hospitalization)
  Sender: FDA-Public Use
  Company Number: ES-ROCHE-2353124

PATIENT
  Age: 56 Year
  Sex: Female

DRUGS (5)
  1. PRAVASTATINA [PRAVASTATIN] [Concomitant]
     Indication: DYSLIPIDAEMIA
  2. RITUXIMAB. [Suspect]
     Active Substance: RITUXIMAB
     Indication: MULTIPLE SCLEROSIS
     Route: 041
     Dates: start: 20181205, end: 20181219
  3. DETRUSITOL [Concomitant]
     Active Substance: TOLTERODINE TARTRATE
     Indication: URINARY INCONTINENCE
     Route: 048
     Dates: end: 20190316
  4. METILPREDNISOLONA [METHYLPREDNISOLONE] [Interacting]
     Active Substance: METHYLPREDNISOLONE
     Indication: MULTIPLE SCLEROSIS
     Route: 042
     Dates: start: 20190212, end: 20190215
  5. AMLODIPINO [AMLODIPINE] [Concomitant]
     Indication: HYPERTENSION
     Route: 048
     Dates: end: 20190316

REACTIONS (2)
  - Drug interaction [Unknown]
  - Bacteraemia [Recovered/Resolved]

NARRATIVE: CASE EVENT DATE: 20190311
